FAERS Safety Report 15794936 (Version 1)
Quarter: 2019Q1

REPORT INFORMATION
  Report Type: Spontaneous
  Country: US (occurrence: US)
  Receive Date: 20190107
  Receipt Date: 20190107
  Transmission Date: 20190417
  Serious: No
  Sender: FDA-Public Use
  Company Number: US-AMNEAL PHARMACEUTICALS-2018AMN00179

PATIENT
  Sex: Female

DRUGS (1)
  1. CITALOPRAM HYDROBROMIDE. [Suspect]
     Active Substance: CITALOPRAM HYDROBROMIDE
     Indication: MOOD ALTERED
     Dosage: UNK
     Route: 065

REACTIONS (4)
  - Tearfulness [Recovering/Resolving]
  - Anxiety [Recovering/Resolving]
  - Irritability [Recovering/Resolving]
  - Disturbance in attention [Recovering/Resolving]
